FAERS Safety Report 13836457 (Version 18)
Quarter: 2019Q1

REPORT INFORMATION
  Report Type: Spontaneous
  Country: US (occurrence: US)
  Receive Date: 20170804
  Receipt Date: 20190220
  Transmission Date: 20190417
  Serious: Yes (Hospitalization)
  Sender: FDA-Public Use
  Company Number: US-ACTELION-A-US2017-157457

PATIENT
  Age: 62 Year
  Sex: Female
  Weight: 47.62 kg

DRUGS (6)
  1. VELETRI [Suspect]
     Active Substance: EPOPROSTENOL
     Indication: PULMONARY ARTERIAL HYPERTENSION
     Dosage: 60 NG/KG, PER MIN
     Route: 042
  2. VELETRI [Suspect]
     Active Substance: EPOPROSTENOL
     Dosage: UNK
     Route: 042
     Dates: start: 2011
  3. SPIRIVA [Concomitant]
     Active Substance: TIOTROPIUM BROMIDE MONOHYDRATE
     Dosage: 18 MCG, QD
  4. VELETRI [Suspect]
     Active Substance: EPOPROSTENOL
     Dosage: 61 NG/KG, PER MIN
     Route: 042
     Dates: start: 2005
  5. VELETRI [Suspect]
     Active Substance: EPOPROSTENOL
     Dosage: 70 NG/KG, PER MIN
     Route: 042
  6. PREDNISONE. [Concomitant]
     Active Substance: PREDNISONE
     Dosage: 5 MG, QD

REACTIONS (30)
  - Catheter management [Unknown]
  - Fluid overload [Unknown]
  - Pleural effusion [Unknown]
  - Fall [Unknown]
  - Gastrointestinal haemorrhage [Unknown]
  - Pulmonary hypertension [Not Recovered/Not Resolved]
  - Cardiac pacemaker insertion [Recovered/Resolved]
  - Clostridium difficile infection [Unknown]
  - Device related infection [Unknown]
  - Mitral valve stenosis [Unknown]
  - Weight decreased [Unknown]
  - Pain [Unknown]
  - Fluid retention [Unknown]
  - Disease progression [Unknown]
  - Epistaxis [Unknown]
  - Acute respiratory failure [Unknown]
  - Dizziness [Recovered/Resolved]
  - Staphylococcal infection [Unknown]
  - Loss of consciousness [Unknown]
  - Blood count abnormal [Unknown]
  - Atrioventricular block complete [Recovered/Resolved]
  - Sinus node dysfunction [Unknown]
  - Endoscopic retrograde cholangiopancreatography [Unknown]
  - Oxygen therapy [Unknown]
  - Dyspnoea [Unknown]
  - Aspiration pleural cavity [Unknown]
  - Malaise [Unknown]
  - Right ventricular failure [Not Recovered/Not Resolved]
  - Pulmonary oedema [Unknown]
  - Oedema peripheral [Unknown]

NARRATIVE: CASE EVENT DATE: 20180710
